FAERS Safety Report 9981014 (Version 1)
Quarter: 2014Q1

REPORT INFORMATION
  Report Type: Spontaneous
  Country: US (occurrence: US)
  Receive Date: 20140307
  Receipt Date: 20140307
  Transmission Date: 20141002
  Serious: No
  Sender: FDA-Public Use
  Company Number: US-009507513-1402USA013050

PATIENT
  Age: 50 Year
  Sex: Female

DRUGS (3)
  1. DULERA [Suspect]
     Indication: ASTHMA
     Dosage: 2 INHALATIONS, TWICE DAILY
     Route: 055
  2. DULERA [Suspect]
     Dosage: UNK
     Route: 055
  3. THYROID [Concomitant]

REACTIONS (1)
  - Angioedema [Recovered/Resolved]
